FAERS Safety Report 8852026 (Version 2)
Quarter: 2012Q4

REPORT INFORMATION
  Report Type: Spontaneous
  Country: HK (occurrence: None)
  Receive Date: 20121017
  Receipt Date: 20121128
  Transmission Date: 20130627
  Serious: Yes (Hospitalization)
  Sender: FDA-Public Use
  Company Number: 2012000225

PATIENT
  Age: 49 Year
  Sex: Male

DRUGS (9)
  1. ACEON (PERINDOPRIL ERBUMINE) TABLET [Suspect]
     Indication: CARDIOMYOPATHY
  2. LITHIUM [Suspect]
     Indication: BIPOLAR AFFECTIVE DISORDER
  3. LITHIUM [Suspect]
     Indication: BIPOLAR AFFECTIVE DISORDER
  4. ARTANE (TRIHEXYPHENIDYL HYDROCHLORIDE) [Concomitant]
  5. TRIFLUOPERAZIN (TRIFLUOPERAZINE HYDROCHLORIDE) [Concomitant]
  6. ASPIRIN (ACETYLSALICYLIC ACID) [Concomitant]
  7. CARVEDILOL (CARVEDILOL) [Concomitant]
  8. FUROSEMIDE (FUROSEMIDE) [Concomitant]
  9. SPIRONOJACTONE (SPIRONOLACTONE) [Concomitant]

REACTIONS (16)
  - Nephrogenic diabetes insipidus [None]
  - Hypernatraemia [None]
  - Toxicity to various agents [None]
  - Cognitive disorder [None]
  - Muscular weakness [None]
  - Gait disturbance [None]
  - Axonal neuropathy [None]
  - Confusional state [None]
  - Body temperature increased [None]
  - Metabolic encephalopathy [None]
  - Hypotonia [None]
  - Continuous haemodiafiltration [None]
  - Coma [None]
  - Ophthalmoplegia [None]
  - Quadriplegia [None]
  - Areflexia [None]
